FAERS Safety Report 16724349 (Version 2)
Quarter: 2019Q3

REPORT INFORMATION
  Report Type: Spontaneous
  Country: ES (occurrence: ES)
  Receive Date: 20190821
  Receipt Date: 20190919
  Transmission Date: 20191005
  Serious: Yes (Other)
  Sender: FDA-Public Use
  Company Number: ES-ASTRAZENECA-2019SF00456

PATIENT
  Age: 6 Month
  Sex: Female
  Weight: 5.8 kg

DRUGS (4)
  1. OP2455 OMEPRAZOLE MAGISTRAL FORMULA [Concomitant]
     Active Substance: OMEPRAZOLE
     Indication: GASTROOESOPHAGEAL REFLUX DISEASE
     Route: 048
     Dates: start: 20190213, end: 20190321
  2. OP2455 - OMEPRAZOLE MAGISTRAL FORMULA [Suspect]
     Active Substance: OMEPRAZOLE
     Indication: GASTROOESOPHAGEAL REFLUX DISEASE
     Route: 048
     Dates: start: 20190328, end: 20190527
  3. MINOXIDIL. [Suspect]
     Active Substance: MINOXIDIL
     Indication: GASTROOESOPHAGEAL REFLUX DISEASE
     Route: 048
     Dates: start: 20190328, end: 20190527
  4. OP2455  OMEPRAZOLE MAGISTRAL FORMULA [Concomitant]
     Active Substance: OMEPRAZOLE
     Indication: GASTROOESOPHAGEAL REFLUX DISEASE
     Route: 048
     Dates: start: 20190527, end: 20190621

REACTIONS (2)
  - Hypertrichosis [Unknown]
  - Product formulation issue [Recovered/Resolved]

NARRATIVE: CASE EVENT DATE: 20190328
